FAERS Safety Report 10268867 (Version 2)
Quarter: 2014Q3

REPORT INFORMATION
  Report Type: Report from Study
  Country: GB (occurrence: GB)
  Receive Date: 20140630
  Receipt Date: 20140709
  Transmission Date: 20150326
  Serious: Yes (Hospitalization)
  Sender: FDA-Public Use
  Company Number: GB-GLAXOSMITHKLINE-B1008416A

PATIENT
  Age: 43 Year
  Sex: Female
  Weight: 60.6 kg

DRUGS (6)
  1. DEXAMETHASONE. [Concomitant]
     Active Substance: DEXAMETHASONE
     Indication: DECREASED APPETITE
     Dosage: 4MG PER DAY
     Route: 048
     Dates: start: 201405
  2. PARACETAMOL [Concomitant]
     Active Substance: ACETAMINOPHEN
     Indication: PAIN
     Dosage: 1G AS REQUIRED
     Route: 048
     Dates: start: 201405
  3. CODEINE SULPHATE [Concomitant]
     Indication: PAIN
     Dosage: 60MG AS REQUIRED
     Route: 048
     Dates: start: 201405
  4. NAPROXEN. [Suspect]
     Active Substance: NAPROXEN
     Indication: PAIN
     Dosage: 250MG THREE TIMES PER DAY
     Route: 048
     Dates: start: 201405, end: 20140513
  5. DABRAFENIB [Suspect]
     Active Substance: DABRAFENIB
     Indication: METASTATIC MALIGNANT MELANOMA
     Dosage: 150MG TWICE PER DAY
     Route: 048
     Dates: start: 20140604
  6. TRAMETINIB [Suspect]
     Active Substance: TRAMETINIB
     Indication: METASTATIC MALIGNANT MELANOMA
     Dosage: 2MG PER DAY
     Route: 048
     Dates: start: 20140604

REACTIONS (5)
  - Fatigue [Unknown]
  - Anaemia [Recovered/Resolved]
  - Duodenal ulcer [Recovering/Resolving]
  - Rash [Unknown]
  - Dizziness [Unknown]

NARRATIVE: CASE EVENT DATE: 20140613
